FAERS Safety Report 8249173-3 (Version None)
Quarter: 2012Q2

REPORT INFORMATION
  Report Type: 
  Country: None (occurrence: None)
  Receive Date: 20120402
  Receipt Date: 20120327
  Transmission Date: 20120825
  Serious: No
  Sender: FDA-Public Use
  Company Number: US-PFIZER INC-2012079597

PATIENT
  Sex: Female

DRUGS (3)
  1. DILTIAZEM HCL [Suspect]
     Dosage: UNK
  2. NIFEDIPINE [Suspect]
     Dosage: UNK
  3. VERAPAMIL HCL [Suspect]
     Dosage: UNK

REACTIONS (3)
  - NAUSEA [None]
  - DRUG INEFFECTIVE [None]
  - HEART RATE INCREASED [None]
